FAERS Safety Report 6187190-8 (Version None)
Quarter: 2009Q2

REPORT INFORMATION
  Report Type: 
  Country: None (occurrence: None)
  Receive Date: 20090512
  Receipt Date: 20090501
  Transmission Date: 20091009
  Serious: Yes (Other)
  Sender: FDA-Public Use
  Company Number: US-NOVOPROD-286818

PATIENT
  Age: 13 Year
  Sex: Male
  Weight: 75 kg

DRUGS (9)
  1. NOVOSEVEN [Suspect]
     Indication: HAEMATURIA
     Dosage: 7.2 MG, SINGLE
     Route: 042
     Dates: start: 20090429, end: 20090429
  2. NOVOSEVEN [Suspect]
     Dosage: 7 MG, SINGLE
     Route: 042
     Dates: start: 20090429, end: 20090429
  3. NOVOSEVEN RT [Suspect]
     Indication: HAEMATURIA
     Dosage: 7 MG, SINGLE
     Route: 042
     Dates: start: 20090430, end: 20090430
  4. NOVOSEVEN RT [Suspect]
     Dosage: 7 MG, SINGLE
     Route: 042
     Dates: start: 20090430, end: 20090430
  5. NOVOSEVEN RT [Suspect]
     Dosage: 7 MG, SINGLE
     Route: 042
     Dates: start: 20090430, end: 20090430
  6. NOVOSEVEN RT [Suspect]
     Dosage: 7 MG, SINGLE
     Route: 042
     Dates: start: 20090430, end: 20090430
  7. NOVOSEVEN RT [Suspect]
     Dosage: 7 MG, SINGLE
     Route: 042
     Dates: start: 20090430, end: 20090430
  8. NOVOSEVEN RT [Suspect]
     Dosage: 7 MG, SINGLE
     Route: 042
     Dates: start: 20090430, end: 20090430
  9. IV FLUIDS [Suspect]

REACTIONS (2)
  - HAEMATURIA [None]
  - PRIAPISM [None]
